FAERS Safety Report 6413257-2 (Version None)
Quarter: 2009Q4

REPORT INFORMATION
  Report Type: 
  Country: None (occurrence: None)
  Receive Date: 20091026
  Receipt Date: 20091021
  Transmission Date: 20100525
  Serious: Yes (Life-Threatening, Hospitalization)
  Sender: FDA-Public Use
  Company Number: JP-JNJFOC-20090903577

PATIENT
  Sex: Female
  Weight: 62 kg

DRUGS (3)
  1. DOXORUBICIN HCL [Suspect]
     Dosage: CYCLE 2
     Route: 042
  2. DOXORUBICIN HCL [Suspect]
     Indication: OVARIAN CANCER RECURRENT
     Dosage: CYCLE 1
     Route: 042
  3. TAKEPRON [Concomitant]
     Route: 048

REACTIONS (3)
  - ANAEMIA [None]
  - DECREASED APPETITE [None]
  - SMALL INTESTINAL HAEMORRHAGE [None]
